FAERS Safety Report 8511092-2 (Version None)
Quarter: 2012Q3

REPORT INFORMATION
  Report Type: 
  Country: None (occurrence: None)
  Receive Date: 20120716
  Receipt Date: 20120711
  Transmission Date: 20120928
  Serious: Yes (Life-Threatening, Hospitalization, Other)
  Sender: FDA-Public Use
  Company Number: US-TYCO HEALTHCARE/MALLINCKRODT-T201101618

PATIENT
  Sex: Male

DRUGS (22)
  1. OPTIRAY 160 [Suspect]
     Indication: COMPUTERISED TOMOGRAM
     Dosage: 125 ML, SINGLE
     Route: 042
     Dates: start: 20110817, end: 20110817
  2. DEXAMETHASONE [Concomitant]
     Dosage: 20 MG AS DIRECTED THE NIGHT BEFORE AND MORNING OF CHEMO
     Route: 048
  3. PLAVIX [Concomitant]
     Dosage: 75 MG, UNK
     Route: 048
  4. PROMETHAZINE [Concomitant]
     Dosage: 25 MG, QID
     Route: 048
  5. XOPENEX [Concomitant]
     Dosage: 1.25 MG/3 ML NEB SOLUTION Q6H
  6. ETOPOSIDE [Concomitant]
     Indication: CHEMOTHERAPY
     Dosage: UNK
  7. CARVEDILOL [Concomitant]
     Dosage: 25 MG, BID
     Route: 048
  8. CLINDAMYCIN [Concomitant]
     Dosage: 1% TOPICAL GEL AS DIRECTED BID
     Route: 061
  9. COLACE [Concomitant]
     Dosage: 100 MG, UNK
     Route: 048
  10. LUNESTA [Concomitant]
     Dosage: 3 MG AT BEDTIME
     Route: 048
  11. RAMIPRIL [Concomitant]
     Dosage: 10 MG, BID
     Route: 048
  12. ANTIBIOTICS [Concomitant]
     Indication: CHRONIC OBSTRUCTIVE PULMONARY DISEASE
     Dosage: UNK
  13. SPIRIVA [Concomitant]
     Dosage: 18 MCG, BID
  14. CARBOPLATIN [Concomitant]
     Indication: CHEMOTHERAPY
     Dosage: UNK
  15. AMLODIPINE [Concomitant]
     Dosage: 5 MG, UNK
     Route: 048
  16. DILAUDID [Concomitant]
     Dosage: 4 MG, QID
     Route: 048
  17. DOXYCYCLINE [Concomitant]
     Dosage: 100 MG, BID
     Route: 048
  18. GLYCOLAX [Concomitant]
     Indication: CONSTIPATION
     Dosage: 17 G, QD
     Route: 048
  19. LOVAZA [Concomitant]
     Dosage: 1 G, UNK
     Route: 048
  20. METFORMIN HYDROCHLORIDE [Concomitant]
     Dosage: 500 MG, UNK
     Route: 048
  21. MAGNESIUM CITRATE [Concomitant]
     Indication: CONSTIPATION
     Dosage: ONE BOTTLE AS NEEDED
     Route: 048
  22. VALIUM [Concomitant]
     Dosage: 2.5 MG, TID
     Route: 048

REACTIONS (3)
  - RESPIRATORY ARREST [None]
  - LOSS OF CONSCIOUSNESS [None]
  - CHEST PAIN [None]
